FAERS Safety Report 24987754 (Version 1)
Quarter: 2025Q1

REPORT INFORMATION
  Report Type: Spontaneous
  Country: NO (occurrence: NO)
  Receive Date: 20250219
  Receipt Date: 20250219
  Transmission Date: 20250409
  Serious: Yes (Hospitalization, Other)
  Sender: JOHNSON AND JOHNSON
  Company Number: NO-GSK-NO2025EME015624

PATIENT
  Age: 47 Year
  Sex: Female

DRUGS (7)
  1. RISPERDAL [Suspect]
     Active Substance: RISPERIDONE
     Indication: Product used for unknown indication
     Route: 065
  2. RISPERDAL [Suspect]
     Active Substance: RISPERIDONE
  3. RISPERDAL [Suspect]
     Active Substance: RISPERIDONE
  4. RISPERDAL [Suspect]
     Active Substance: RISPERIDONE
  5. RISPERDAL [Suspect]
     Active Substance: RISPERIDONE
  6. RISPERDAL [Suspect]
     Active Substance: RISPERIDONE
  7. LAMICTAL [Suspect]
     Active Substance: LAMOTRIGINE
     Indication: Bipolar disorder
     Route: 050
     Dates: start: 20100805, end: 20230610

REACTIONS (7)
  - Chest pain [Not Recovered/Not Resolved]
  - Gastric ulcer [Unknown]
  - Bone pain [Unknown]
  - Fall [Unknown]
  - Injury [Unknown]
  - Impaired quality of life [Unknown]
  - Photopsia [Unknown]

NARRATIVE: CASE EVENT DATE: 20150813
